FAERS Safety Report 10754050 (Version 1)
Quarter: 2015Q1

REPORT INFORMATION
  Report Type: Spontaneous
  Country: US (occurrence: US)
  Receive Date: 20150202
  Receipt Date: 20150202
  Transmission Date: 20150721
  Serious: No
  Sender: FDA-Public Use
  Company Number: US-LEO PHARMA-231936

PATIENT
  Age: 55 Year
  Sex: Female

DRUGS (6)
  1. PICATO [Suspect]
     Active Substance: INGENOL MEBUTATE
     Indication: SQUAMOUS CELL CARCINOMA
  2. METHOTREXATE [Concomitant]
     Active Substance: METHOTREXATE
     Indication: PRODUCT USED FOR UNKNOWN INDICATION
  3. TRAZODONE [Concomitant]
     Active Substance: TRAZODONE HYDROCHLORIDE
     Indication: PRODUCT USED FOR UNKNOWN INDICATION
  4. PICATO [Suspect]
     Active Substance: INGENOL MEBUTATE
     Indication: ACTINIC KERATOSIS
     Route: 061
     Dates: start: 20141225
  5. HUMERA [Concomitant]
     Active Substance: ADALIMUMAB
     Indication: PRODUCT USED FOR UNKNOWN INDICATION
  6. PICATO [Suspect]
     Active Substance: INGENOL MEBUTATE
     Indication: BASAL CELL CARCINOMA

REACTIONS (4)
  - Application site vesicles [Not Recovered/Not Resolved]
  - Product use issue [Unknown]
  - Drug administration error [Unknown]
  - Application site erythema [Not Recovered/Not Resolved]

NARRATIVE: CASE EVENT DATE: 20141225
